FAERS Safety Report 25933419 (Version 1)
Quarter: 2025Q4

REPORT INFORMATION
  Report Type: Spontaneous
  Country: GB (occurrence: US)
  Receive Date: 20251017
  Receipt Date: 20251017
  Transmission Date: 20260118
  Serious: No
  Sender: ORPHALAN
  Company Number: GB-ORPHALAN-US-ORP-25-00161

PATIENT
  Sex: Male
  Weight: 95.1 kg

DRUGS (1)
  1. CUVRIOR [Suspect]
     Active Substance: TRIENTINE TETRAHYDROCHLORIDE
     Indication: Hepato-lenticular degeneration
     Dosage: 600 MILLIGRAM, BID, 1H BEFORE OR 2H AFTER EATING
     Route: 048
     Dates: start: 20230621

REACTIONS (1)
  - Product dose omission issue [Recovered/Resolved]
